FAERS Safety Report 10216982 (Version 2)
Quarter: 2014Q2

REPORT INFORMATION
  Report Type: Spontaneous
  Country: BR (occurrence: BR)
  Receive Date: 20140604
  Receipt Date: 20140612
  Transmission Date: 20141212
  Serious: Yes (Hospitalization)
  Sender: FDA-Public Use
  Company Number: BR-DSJP-DSU-2014-110026

PATIENT
  Sex: 0

DRUGS (4)
  1. OLMETEC 20MG [Suspect]
     Indication: HYPERTENSION
     Dosage: 40 MG, QD
     Route: 048
     Dates: start: 20100527, end: 2014
  2. OLMETEC 20MG [Suspect]
     Dosage: UNK UNK, BID
     Dates: start: 201405
  3. HYDROCHLOROTHIAZIDE [Concomitant]
     Indication: HYPERTENSION
     Dosage: UNKNOWN
     Route: 048
  4. ROSUVASTATIN [Concomitant]
     Indication: HYPERTENSION
     Dosage: UNKNOWN
     Route: 048

REACTIONS (2)
  - Haemorrhagic stroke [Unknown]
  - Treatment noncompliance [Recovered/Resolved]
